FAERS Safety Report 19976347 (Version 1)
Quarter: 2021Q4

REPORT INFORMATION
  Report Type: Report from Study
  Country: MX (occurrence: MX)
  Receive Date: 20211020
  Receipt Date: 20211020
  Transmission Date: 20220303
  Serious: Yes (Other)
  Sender: FDA-Public Use
  Company Number: MX-NOVARTISPH-NVSC2021MX214696

PATIENT
  Age: 64 Year
  Sex: Female
  Weight: 60 kg

DRUGS (4)
  1. DIOVAN [Suspect]
     Active Substance: VALSARTAN
     Indication: Hypertension
     Dosage: 2 OF 80 MG (1 TABLET IN THE AFTERNOON), BID, 6 YEARS AGO
     Route: 048
     Dates: end: 202105
  2. DIOVAN [Suspect]
     Active Substance: VALSARTAN
     Dosage: 3 DF
     Route: 048
     Dates: start: 202105
  3. DIOVAN [Suspect]
     Active Substance: VALSARTAN
     Dosage: 1 ? OF 160 MG (1 TABLET IN THE MORNING AND 1/2 TABLET IN THE AFTERNOON), BID
     Route: 048
     Dates: start: 202105
  4. ATENOLOL [Concomitant]
     Active Substance: ATENOLOL
     Indication: Hypertension
     Dosage: 50 MG, QD (IN THE AFTERNOON), STARTED MORE THAN 6 YEARS AGO
     Route: 048

REACTIONS (3)
  - Typhoid fever [Recovered/Resolved]
  - Blood pressure abnormal [Recovered/Resolved]
  - Inappropriate schedule of product administration [Not Recovered/Not Resolved]

NARRATIVE: CASE EVENT DATE: 20210501
